FAERS Safety Report 4612826-X (Version None)
Quarter: 2005Q1

REPORT INFORMATION
  Report Type: 
  Country: None (occurrence: None)
  Receive Date: 20050318
  Receipt Date: 20050309
  Transmission Date: 20050727
  Serious: Yes (Disabling)
  Sender: FDA-Public Use
  Company Number: US-MERCK-0503USA02145

PATIENT
  Age: 45 Year
  Sex: Female

DRUGS (1)
  1. VIOXX [Suspect]
     Route: 048
     Dates: end: 20040930

REACTIONS (5)
  - DIZZINESS [None]
  - MUSCLE SPASMS [None]
  - NAUSEA [None]
  - SPEECH DISORDER [None]
  - TACHYCARDIA [None]
